FAERS Safety Report 7735371-1 (Version None)
Quarter: 2011Q3

REPORT INFORMATION
  Report Type: 
  Country: None (occurrence: None)
  Receive Date: 20110907
  Receipt Date: 20110831
  Transmission Date: 20111222
  Serious: Yes (Hospitalization, Other)
  Sender: FDA-Public Use
  Company Number: PHHY2011US77961

PATIENT
  Age: 75 Year
  Sex: Female

DRUGS (2)
  1. ISONIAZID [Suspect]
     Indication: TUBERCULOSIS
     Dosage: 300 MG, DAILY
  2. PYRIDOXINE HCL [Concomitant]

REACTIONS (15)
  - DYSPNOEA [None]
  - EOSINOPHILIA [None]
  - COUGH [None]
  - GENERALISED OEDEMA [None]
  - NIGHT SWEATS [None]
  - PYREXIA [None]
  - ARTHRALGIA [None]
  - LUPUS-LIKE SYNDROME [None]
  - OEDEMA PERIPHERAL [None]
  - PLEURAL EFFUSION [None]
  - CREPITATIONS [None]
  - BLOOD PRESSURE DECREASED [None]
  - INTERNATIONAL NORMALISED RATIO INCREASED [None]
  - HEART RATE IRREGULAR [None]
  - CHILLS [None]
